FAERS Safety Report 4828597-8 (Version None)
Quarter: 2005Q4

REPORT INFORMATION
  Report Type: 
  Country: None (occurrence: None)
  Receive Date: 20051115
  Receipt Date: 20051110
  Transmission Date: 20060501
  Serious: Yes (Death)
  Sender: FDA-Public Use
  Company Number: US-JNJFOC-20050905666

PATIENT
  Sex: Male

DRUGS (2)
  1. NATRECOR [Suspect]
     Indication: DRUG USE FOR UNKNOWN INDICATION
     Route: 042
  2. DOBUTAMINE [Suspect]
     Indication: DRUG USE FOR UNKNOWN INDICATION
     Route: 042

REACTIONS (3)
  - RESPIRATORY FAILURE [None]
  - SEPSIS [None]
  - STAPHYLOCOCCAL INFECTION [None]
